FAERS Safety Report 7109937-6 (Version None)
Quarter: 2010Q4

REPORT INFORMATION
  Report Type: 
  Country: None (occurrence: None)
  Receive Date: 20101116
  Receipt Date: 20101116
  Transmission Date: 20110411
  Serious: Yes (Life-Threatening)
  Sender: FDA-Public Use
  Company Number: None

PATIENT
  Sex: Male
  Weight: 90 kg

DRUGS (3)
  1. BEVACIZUMAB 10MG/KL GENENTECH [Suspect]
     Indication: GLIOBLASTOMA
     Dosage: 918 MG Q 2 WEEKS IV DRIP
     Route: 041
     Dates: start: 20101102, end: 20101102
  2. IRINOTECAN HCL [Concomitant]
  3. VORINOSTAT [Concomitant]

REACTIONS (1)
  - CEREBROVASCULAR ACCIDENT [None]
